FAERS Safety Report 6360969-5 (Version None)
Quarter: 2009Q3

REPORT INFORMATION
  Report Type: 
  Country: None (occurrence: None)
  Receive Date: 20090918
  Receipt Date: 20090914
  Transmission Date: 20100115
  Serious: Yes (Hospitalization)
  Sender: FDA-Public Use
  Company Number: FR-BRISTOL-MYERS SQUIBB COMPANY-14779573

PATIENT
  Age: 16 Year
  Sex: Male

DRUGS (26)
  1. FUNGIZONE [Suspect]
     Route: 048
     Dates: start: 20090728
  2. CIPROFLOXACINE PANPHARMA [Suspect]
     Indication: PYREXIA
     Dates: start: 20090802
  3. METHOTREXATE-TEVA [Suspect]
     Indication: ACUTE MYELOID LEUKAEMIA
     Route: 037
     Dates: start: 20090726, end: 20090803
  4. ARACYTINE [Suspect]
     Indication: ACUTE MYELOID LEUKAEMIA
     Dosage: ALSO GIVEN IN IV ROUTE, 200MG/M2 I.E  340MG/D IV FOR 7 DAYS 26JUL-01AUG09.
     Route: 037
     Dates: start: 20090726, end: 20090803
  5. MITOXANTRONE [Suspect]
     Indication: ACUTE MYELOID LEUKAEMIA
     Dosage: 12MG/M2
     Route: 042
     Dates: start: 20090726, end: 20090730
  6. METHYLPREDNISOLONE [Suspect]
     Indication: ACUTE MYELOID LEUKAEMIA
     Route: 037
     Dates: start: 20090726, end: 20090803
  7. TAZOCILLINE [Suspect]
     Indication: PYREXIA
     Route: 042
     Dates: start: 20090725, end: 20090806
  8. TARGOCID [Suspect]
     Indication: PYREXIA
     Route: 042
     Dates: start: 20090725
  9. CANCIDAS [Suspect]
     Indication: PYREXIA
     Route: 042
     Dates: start: 20090726, end: 20090809
  10. GENTAMICINE [Suspect]
     Indication: PYREXIA
     Route: 042
     Dates: start: 20090728
  11. INEXIUM [Suspect]
     Route: 042
     Dates: start: 20090728
  12. TIORFAN [Suspect]
     Route: 048
     Dates: start: 20090731
  13. METRONIDAZOLE [Suspect]
     Route: 042
     Dates: start: 20090803, end: 20090806
  14. BACTRIM [Suspect]
     Indication: PROPHYLAXIS
     Route: 048
     Dates: start: 20090804
  15. ACYCLOVIR [Suspect]
     Indication: PYREXIA
     Route: 042
     Dates: start: 20090805
  16. TIENAM [Suspect]
     Indication: PYREXIA
     Route: 042
     Dates: start: 20090807, end: 20090816
  17. CONTRAMAL [Suspect]
     Indication: PAIN
     Route: 042
     Dates: start: 20090807, end: 20090809
  18. ONDANSETRON [Concomitant]
     Dosage: 2DF=2MG/ML
     Route: 042
  19. PLITICAN [Concomitant]
     Route: 042
  20. AMIKACIN [Concomitant]
     Route: 042
     Dates: start: 20090725, end: 20090726
  21. NALBUPHINE [Concomitant]
     Route: 042
     Dates: start: 20090730, end: 20090803
  22. PULMICORT-100 [Concomitant]
     Dates: start: 20090730, end: 20090731
  23. SPASFON [Concomitant]
     Dates: start: 20090731, end: 20090802
  24. TRANXENE [Concomitant]
     Dosage: 1DF=20MG/2ML
     Dates: start: 20090804
  25. EFFERALGAN [Concomitant]
     Route: 048
     Dates: start: 20090725
  26. FASTURTEC [Concomitant]
     Route: 042
     Dates: start: 20090725, end: 20090727

REACTIONS (5)
  - CYTOTOXIC OEDEMA [None]
  - DYSARTHRIA [None]
  - EPILEPSY [None]
  - FACIAL PALSY [None]
  - HEMIPLEGIA [None]
